FAERS Safety Report 5675844-9 (Version None)
Quarter: 2008Q1

REPORT INFORMATION
  Report Type: 
  Country: None (occurrence: None)
  Receive Date: 20080318
  Receipt Date: 20080310
  Transmission Date: 20080703
  Serious: Yes (Hospitalization)
  Sender: FDA-Public Use
  Company Number: 163-21880-08030622

PATIENT
  Age: 49 Year
  Sex: Female

DRUGS (1)
  1. REVLIMID [Suspect]
     Indication: MULTIPLE MYELOMA
     Dosage: 10 MG, DAILY AT BEDTIME, ORAL
     Route: 048
     Dates: start: 20070406, end: 20080301

REACTIONS (1)
  - INTESTINAL OBSTRUCTION [None]
